FAERS Safety Report 9777005 (Version 1)
Quarter: 2013Q4

REPORT INFORMATION
  Report Type: Spontaneous
  Country: US (occurrence: US)
  Receive Date: 20131221
  Receipt Date: 20131221
  Transmission Date: 20140711
  Serious: Yes (Hospitalization)
  Sender: FDA-Public Use
  Company Number: US-SUN PHARMACEUTICAL INDUSTRIES LTD-2013SUN05233

PATIENT
  Age: 80 Year
  Sex: Male

DRUGS (14)
  1. ALLOPURINOL [Suspect]
     Indication: GOUT
     Dosage: 300 MG, UNK
     Route: 048
  2. TRIAMTERENE/HYDROCHLOROTHIAZIDE [Suspect]
     Indication: HYPERTENSION
     Dosage: 25MG/37.5MG
     Route: 048
  3. FLUTICASONE INHALANT [Concomitant]
     Dosage: 110 MCG DAILY
  4. MONTELUKAST [Concomitant]
     Dosage: 10 MG, UNK
  5. IRBESARTAN [Concomitant]
     Dosage: 300 MG, OD
     Route: 048
  6. GLYBURIDE [Concomitant]
     Dosage: 2.5 MG, BID
     Route: 048
  7. ALBUTEROL [Concomitant]
     Dosage: 90 MCG 2 PUFFS Q6H PRN
  8. TERAZOCINE [Concomitant]
     Dosage: 2 MG PO QHS
  9. SIMVASTATIN [Concomitant]
     Dosage: 40 MG, OD
     Route: 048
  10. AZELASTINE [Concomitant]
     Dosage: 137 MCG 1 SPRAY IN BOTH NOSTRILS PRN
  11. MECLIZINE [Concomitant]
     Dosage: 25 MG, UNK
     Route: 048
  12. FEXOFENADINE [Concomitant]
     Dosage: 150 MG, QPM
     Route: 048
  13. CYCLOBENZAPRINE [Concomitant]
     Dosage: 10 MG, PRN
     Route: 048
  14. HYDROCODONE/ACETAMINOPHEN [Concomitant]
     Dosage: 5/500 MG 2 TABS PO DAILY PRN

REACTIONS (9)
  - Drug reaction with eosinophilia and systemic symptoms [Recovering/Resolving]
  - Renal cyst [None]
  - Ventricular hypertrophy [None]
  - Vasculitis [None]
  - Renal failure [None]
  - Cerebrovascular accident [None]
  - Respiratory arrest [None]
  - Shock [None]
  - Type III immune complex mediated reaction [None]
